FAERS Safety Report 12163762 (Version 1)
Quarter: 2016Q1

REPORT INFORMATION
  Report Type: Spontaneous
  Country: PT (occurrence: PT)
  Receive Date: 20160309
  Receipt Date: 20160309
  Transmission Date: 20160526
  Serious: Yes (Disabling, Other)
  Sender: FDA-Public Use
  Company Number: PT-JNJFOC-20160300453

PATIENT
  Age: 27 Year
  Sex: Male
  Weight: 57 kg

DRUGS (12)
  1. MORFEX [Concomitant]
     Active Substance: FLURAZEPAM HYDROCHLORIDE
     Indication: INSOMNIA
     Route: 065
     Dates: start: 2014, end: 201602
  2. CLARITHROMYCIN. [Concomitant]
     Active Substance: CLARITHROMYCIN
     Indication: ROSACEA
     Route: 048
     Dates: start: 20160131, end: 20160214
  3. VITAMIN B2 [Concomitant]
     Active Substance: RIBOFLAVIN
     Route: 065
  4. VITAMIN B5 [Concomitant]
     Active Substance: PANTOTHENIC ACID
     Route: 065
  5. SPORANOX [Suspect]
     Active Substance: ITRACONAZOLE
     Indication: SEBORRHOEA
     Route: 048
     Dates: start: 20160211, end: 20160212
  6. VITAMIN B3 [Concomitant]
     Active Substance: NIACIN
     Route: 065
  7. VITAMIN B6 [Concomitant]
     Active Substance: PYRIDOXINE HYDROCHLORIDE
     Route: 065
  8. ROSILAN [Suspect]
     Active Substance: DEFLAZACORT
     Indication: SEBORRHOEA
     Route: 065
     Dates: start: 20160212, end: 20160213
  9. DOXYCYCLINE MONOHYDRATE [Concomitant]
     Active Substance: DOXYCYCLINE
     Indication: ROSACEA
     Route: 048
     Dates: start: 20160131
  10. VITAMINE B1 [Concomitant]
     Route: 065
  11. VITA B12 [Concomitant]
     Route: 065
  12. MAGNESIUM [Concomitant]
     Active Substance: MAGNESIUM
     Indication: INSOMNIA
     Dosage: 20 DROPS
     Route: 065

REACTIONS (19)
  - Dizziness [Recovered/Resolved]
  - Gastrooesophageal reflux disease [Recovered/Resolved]
  - Tremor [Recovered/Resolved]
  - Ear pain [Recovering/Resolving]
  - Palpitations [Recovered/Resolved]
  - Asthenia [Recovered/Resolved]
  - Hiccups [Recovered/Resolved]
  - Throat irritation [Recovering/Resolving]
  - Deafness bilateral [Recovering/Resolving]
  - Diplopia [Recovered/Resolved]
  - Headache [Recovered/Resolved]
  - Vision blurred [Recovered/Resolved]
  - Dysphagia [Recovered/Resolved]
  - Confusional state [Recovered/Resolved]
  - Insomnia [Recovered/Resolved]
  - Dyspnoea [Recovered/Resolved]
  - Disorientation [Recovered/Resolved]
  - Deafness unilateral [Recovering/Resolving]
  - Hyperhidrosis [Recovered/Resolved]

NARRATIVE: CASE EVENT DATE: 20160212
